FAERS Safety Report 7240401-X (Version None)
Quarter: 2011Q1

REPORT INFORMATION
  Report Type: 
  Country: None (occurrence: None)
  Receive Date: 20110124
  Receipt Date: 20110114
  Transmission Date: 20110831
  Serious: Yes (Other)
  Sender: FDA-Public Use
  Company Number: US-US-EMD SERONO, INC.-233225J09USA

PATIENT
  Sex: Female
  Weight: 98 kg

DRUGS (4)
  1. REBIF [Suspect]
     Route: 058
     Dates: start: 20100524
  2. SYNTHROID [Concomitant]
     Indication: HYPOTHYROIDISM
     Route: 065
  3. HIGH BLOOD PRESSURE MEDICATION [Concomitant]
     Indication: HYPERTENSION
     Route: 065
  4. REBIF [Suspect]
     Indication: MULTIPLE SCLEROSIS
     Route: 058
     Dates: start: 20030913, end: 20050101

REACTIONS (4)
  - BREAST CANCER [None]
  - PAIN [None]
  - HEPATIC ENZYME INCREASED [None]
  - CHILLS [None]
